FAERS Safety Report 22355296 (Version 1)
Quarter: 2023Q2

REPORT INFORMATION
  Report Type: Spontaneous
  Country: CM (occurrence: CM)
  Receive Date: 20230523
  Receipt Date: 20230523
  Transmission Date: 20230722
  Serious: Yes (Other)
  Sender: FDA-Public Use
  Company Number: CM-002147023-NVSC2023CM113955

PATIENT
  Age: 29 Year
  Sex: Female
  Weight: 56.75 kg

DRUGS (19)
  1. AMLODIPINE [Suspect]
     Active Substance: AMLODIPINE BESYLATE
     Indication: Hypertension
     Dosage: 10 MG, QD
     Route: 065
  2. CALCIUM CARBONATE [Suspect]
     Active Substance: CALCIUM CARBONATE
     Indication: Product used for unknown indication
     Dosage: UNK
     Route: 065
  3. CALCIUM CARBONATE [Suspect]
     Active Substance: CALCIUM CARBONATE
     Dosage: UNK (BETWEEN MEALS)
     Route: 065
  4. HEPARIN [Suspect]
     Active Substance: HEPARIN SODIUM
     Indication: Haemorrhage prophylaxis
     Dosage: UNK
     Route: 065
  5. ENOXAPARIN [Suspect]
     Active Substance: ENOXAPARIN
     Indication: Haemorrhage prophylaxis
     Dosage: UNK
     Route: 065
  6. ASPIRIN [Suspect]
     Active Substance: ASPIRIN
     Indication: Product used for unknown indication
     Dosage: 100 MG, QD
     Route: 065
  7. EPOETIN BETA [Suspect]
     Active Substance: ERYTHROPOIETIN
     Indication: Supplementation therapy
     Dosage: UNK, QW3
     Route: 065
  8. VITAMIN C [Suspect]
     Active Substance: ASCORBIC ACID
     Indication: Product used for unknown indication
     Dosage: 500 MG, QW2
     Route: 065
  9. VITAMIN B-COMPLEX [Suspect]
     Active Substance: DEXPANTHENOL\NIACINAMIDE\PYRIDOXINE HYDROCHLORIDE\RIBOFLAVIN 5^-PHOSPHATE SODIUM\THIAMINE HYDROCHLOR
     Indication: Product used for unknown indication
     Dosage: UNK (AT END OF EVERY HD SESSION)
     Route: 042
  10. VITAMIN D [Suspect]
     Active Substance: VITAMIN D NOS
     Indication: Product used for unknown indication
     Dosage: 100000 IU, Q2MO
     Route: 065
  11. FOLIC ACID [Suspect]
     Active Substance: FOLIC ACID
     Indication: Product used for unknown indication
     Dosage: 5 MG, QD
     Route: 065
  12. IRON SUCROSE [Suspect]
     Active Substance: IRON SUCROSE
     Indication: Product used for unknown indication
     Dosage: 100 MG, QW
     Route: 042
  13. NICARDIPINE [Suspect]
     Active Substance: NICARDIPINE
     Indication: Product used for unknown indication
     Dosage: UNK
     Route: 065
  14. PYRIMETHAMINE [Suspect]
     Active Substance: PYRIMETHAMINE
     Indication: Malaria prophylaxis
     Dosage: 3 DOSAGE FORM, QW
     Route: 065
  15. SULFADOXINE [Suspect]
     Active Substance: SULFADOXINE
     Indication: Malaria prophylaxis
     Dosage: 3 DOSAGE FORM, QW
     Route: 065
  16. METHYLDOPA [Suspect]
     Active Substance: METHYLDOPA
     Indication: Blood pressure management
     Dosage: 250 MG, BID
     Route: 065
  17. LABETALOL [Suspect]
     Active Substance: LABETALOL\LABETALOL HYDROCHLORIDE
     Indication: Blood pressure management
     Dosage: 400 MG, QD
     Route: 065
  18. QUININE [Suspect]
     Active Substance: QUININE
     Indication: Malaria
     Dosage: UNK
     Route: 065
  19. BUPIVACAINE [Suspect]
     Active Substance: BUPIVACAINE
     Indication: Spinal anaesthesia
     Dosage: 10 MG (HYPERBARIC)
     Route: 065

REACTIONS (2)
  - Premature delivery [Unknown]
  - Maternal exposure during pregnancy [Unknown]
